FAERS Safety Report 4389063-X (Version None)
Quarter: 2004Q2

REPORT INFORMATION
  Report Type: 
  Country: None (occurrence: None)
  Receive Date: 20040628
  Receipt Date: 20040617
  Transmission Date: 20050107
  Serious: Yes (Hospitalization)
  Sender: FDA-Public Use
  Company Number: 204718

PATIENT
  Age: 42 Year
  Sex: Male

DRUGS (3)
  1. EFALIZUMAB (EFALIZUMAB) PWDR +SOLVENT, INJECTION SOLN, 125MG [Suspect]
     Indication: PSORIASIS
     Dosage: 1 MG/KG, 1/WEEK, SUBCUTANEOUS
     Route: 058
     Dates: start: 20031210
  2. RANITIDINE [Concomitant]
  3. ZELTIREX (VALACICLOVIR) [Concomitant]

REACTIONS (1)
  - GASTROENTERITIS SALMONELLA [None]
